FAERS Safety Report 22117704 (Version 1)
Quarter: 2023Q1

REPORT INFORMATION
  Report Type: Spontaneous
  Country: RU (occurrence: RU)
  Receive Date: 20230321
  Receipt Date: 20230321
  Transmission Date: 20230417
  Serious: Yes (Life-Threatening, Hospitalization, Other)
  Sender: FDA-Public Use
  Company Number: RU-HETERO-HET2023RU00571

PATIENT
  Age: 53 Year
  Sex: Male
  Weight: 49 kg

DRUGS (11)
  1. MOXIFLOXACIN [Suspect]
     Active Substance: MOXIFLOXACIN
     Indication: Pulmonary tuberculosis
     Dosage: 400 MG, QD
     Route: 048
     Dates: start: 20230201, end: 20230217
  2. PROTIONAMIDE [Suspect]
     Active Substance: PROTIONAMIDE
     Indication: Pulmonary tuberculosis
     Dosage: 250 MG, 2 TIMES A DAY
     Route: 048
     Dates: start: 20221209, end: 20230120
  3. PROTIONAMIDE [Suspect]
     Active Substance: PROTIONAMIDE
     Dosage: 250 MG, 2 DAYS
     Route: 048
     Dates: start: 20230128, end: 20230207
  4. CYCLOSERINE [Suspect]
     Active Substance: CYCLOSERINE
     Indication: Pulmonary tuberculosis
     Dosage: 250 MG, 2 TIMES A DAY
     Route: 048
     Dates: start: 20220801, end: 20230217
  5. LEVOFLOXACIN [Concomitant]
     Active Substance: LEVOFLOXACIN
     Indication: Pulmonary tuberculosis
     Dosage: 1000 MG, QD
     Route: 048
     Dates: start: 20220801, end: 20230131
  6. BEDAQUILINE [Concomitant]
     Active Substance: BEDAQUILINE
     Indication: Pulmonary tuberculosis
     Dosage: 200 MG, EVERY 3 WEEKS
     Route: 048
     Dates: start: 20220802, end: 20230116
  7. LINEZOLID [Concomitant]
     Active Substance: LINEZOLID
     Indication: Pulmonary tuberculosis
     Dosage: 600 MG, QD
     Route: 048
     Dates: start: 20220801, end: 20221207
  8. BRONCHORUS [Concomitant]
     Indication: Product used for unknown indication
     Dosage: 30 MG, TID
     Route: 048
     Dates: start: 20221214, end: 20230220
  9. CAPREOMYCIN [Concomitant]
     Active Substance: CAPREOMYCIN
     Indication: Pulmonary tuberculosis
     Dosage: 1000 MG
     Route: 042
     Dates: start: 20220801, end: 20230214
  10. GLUTAMIC ACID [Concomitant]
     Active Substance: GLUTAMIC ACID
     Indication: Prophylaxis
     Dosage: 500 MG, TID
     Route: 048
     Dates: start: 20220801, end: 20230217
  11. PHOSPHOGLIV [GLYCYRRHIZIC ACID;PHOSPHOLIPIDS] [Concomitant]
     Indication: Prophylaxis
     Dosage: 65/35 MG 3 TIMES PER DAY
     Route: 048
     Dates: start: 20230126, end: 20230222

REACTIONS (10)
  - Hypocoagulable state [Not Recovered/Not Resolved]
  - Hypoproteinaemia [Not Recovered/Not Resolved]
  - Ocular icterus [Not Recovered/Not Resolved]
  - Erythema [Not Recovered/Not Resolved]
  - Blood creatinine decreased [Not Recovered/Not Resolved]
  - Vomiting [Not Recovered/Not Resolved]
  - Yellow skin [Not Recovered/Not Resolved]
  - Transaminases increased [Not Recovered/Not Resolved]
  - Blood bilirubin increased [Not Recovered/Not Resolved]
  - Abdominal pain upper [Not Recovered/Not Resolved]

NARRATIVE: CASE EVENT DATE: 20230110
